FAERS Safety Report 5590309-0 (Version None)
Quarter: 2007Q4

REPORT INFORMATION
  Report Type: 
  Country: None (occurrence: None)
  Receive Date: 20071214
  Receipt Date: 20060814
  Transmission Date: 20080405
  Serious: Yes (Other)
  Sender: FDA-Public Use
  Company Number: 2007019296

PATIENT
  Sex: Male

DRUGS (1)
  1. XANAX [Suspect]

REACTIONS (2)
  - DEPENDENCE [None]
  - STRESS [None]
